FAERS Safety Report 26080129 (Version 2)
Quarter: 2025Q4

REPORT INFORMATION
  Report Type: Report from Study
  Country: US (occurrence: US)
  Receive Date: 20251124
  Receipt Date: 20251210
  Transmission Date: 20260118
  Serious: Yes (Hospitalization, Other)
  Sender: ABBVIE
  Company Number: US-ABBVIE-6559885

PATIENT
  Age: 70 Year
  Sex: Male

DRUGS (3)
  1. LINZESS [Suspect]
     Active Substance: LINACLOTIDE
     Indication: Product used for unknown indication
     Dosage: 290 MICROGRAM
     Route: 048
     Dates: start: 20221214
  2. CREON [Suspect]
     Active Substance: PANCRELIPASE AMYLASE\PANCRELIPASE LIPASE\PANCRELIPASE PROTEASE
     Indication: Pancreatic failure
     Dosage: 2 CAPSULE PER MEAL 1 CAPSULE PER SNACK
     Route: 048
     Dates: start: 20241017, end: 202411
  3. CREON [Suspect]
     Active Substance: PANCRELIPASE AMYLASE\PANCRELIPASE LIPASE\PANCRELIPASE PROTEASE
     Indication: Pancreatic failure
     Dosage: 3 CAPSULE PER MEAL 2 CAPSULE PER SNACK
     Route: 048
     Dates: start: 202411

REACTIONS (14)
  - Peripheral swelling [Unknown]
  - Arthropod bite [Recovering/Resolving]
  - Skin atrophy [Unknown]
  - Pain in extremity [Unknown]
  - Streptococcal infection [Recovered/Resolved]
  - Erythema [Unknown]
  - Musculoskeletal disorder [Unknown]
  - Wound haemorrhage [Recovered/Resolved]
  - Joint effusion [Unknown]
  - Sepsis [Recovered/Resolved]
  - Feeling hot [Unknown]
  - Peripheral swelling [Recovered/Resolved]
  - White blood cell count abnormal [Recovered/Resolved]
  - Scab [Recovering/Resolving]

NARRATIVE: CASE EVENT DATE: 20251101
